FAERS Safety Report 10856646 (Version 2)
Quarter: 2015Q1

REPORT INFORMATION
  Report Type: Spontaneous
  Country: US (occurrence: US)
  Receive Date: 20150223
  Receipt Date: 20150323
  Transmission Date: 20150721
  Serious: No
  Sender: FDA-Public Use
  Company Number: US-009507513-1502USA009231

PATIENT
  Sex: Female
  Weight: 67.12 kg

DRUGS (1)
  1. OXYTROL FOR WOMEN [Suspect]
     Active Substance: OXYBUTYNIN
     Indication: MICTURITION URGENCY
     Dosage: 1 DF, Q4D
     Route: 062
     Dates: start: 2014

REACTIONS (4)
  - Circumstance or information capable of leading to medication error [Unknown]
  - Urinary incontinence [Unknown]
  - Micturition urgency [Unknown]
  - Drug effect variable [Unknown]
